FAERS Safety Report 4968070-X (Version None)
Quarter: 2006Q2

REPORT INFORMATION
  Report Type: 
  Country: None (occurrence: None)
  Receive Date: 20060410
  Receipt Date: 20060403
  Transmission Date: 20061013
  Serious: Yes (Other)
  Sender: FDA-Public Use
  Company Number: BR-ROCHE-443118

PATIENT
  Age: 43 Year
  Sex: Female
  Weight: 54 kg

DRUGS (4)
  1. RIVOTRIL [Suspect]
     Indication: DEPRESSION
     Route: 048
     Dates: start: 19960615
  2. EQUILID [Concomitant]
     Dates: end: 20051015
  3. LEXOTAN [Concomitant]
     Dates: end: 20051015
  4. STELAZINE [Concomitant]
     Dates: end: 20051015

REACTIONS (1)
  - BLINDNESS [None]
